FAERS Safety Report 9016241 (Version 1)
Quarter: 2013Q1

REPORT INFORMATION
  Report Type: Report from Study
  Country: NL (occurrence: NL)
  Receive Date: 20130116
  Receipt Date: 20130116
  Transmission Date: 20140127
  Serious: Yes (Hospitalization)
  Sender: FDA-Public Use
  Company Number: NL-B.I. PHARMACEUTICALS,INC./RIDGEFIELD-2013-NL-00013NL

PATIENT
  Age: 79 Year
  Sex: Male

DRUGS (3)
  1. PERSANTIN [Suspect]
     Indication: THROMBOSIS PROPHYLAXIS
     Dosage: 400 MG
     Dates: start: 20121205, end: 20121218
  2. ASCAL CARDIO [Suspect]
     Dosage: 100 MG
     Dates: start: 20121129, end: 20121218
  3. SIMVASTATINE [Suspect]
     Dosage: 40 MG
     Dates: start: 20121129, end: 20121220

REACTIONS (2)
  - Decreased appetite [Recovered/Resolved]
  - Dehydration [Recovered/Resolved]
